FAERS Safety Report 5170466-0 (Version None)
Quarter: 2006Q4

REPORT INFORMATION
  Report Type: 
  Country: None (occurrence: None)
  Receive Date: 20061204
  Receipt Date: 20061123
  Transmission Date: 20070319
  Serious: Yes (Other)
  Sender: FDA-Public Use
  Company Number: 2006144998

PATIENT
  Sex: Male

DRUGS (2)
  1. EPANUTIN (PHENYTOIN SODIUM) [Suspect]
     Indication: EPILEPSY
  2. PHENOBARBITAL TAB [Concomitant]

REACTIONS (8)
  - CARDIAC DISORDER [None]
  - GASTROINTESTINAL DISORDER [None]
  - GLAUCOMA [None]
  - HEART RATE INCREASED [None]
  - HYPOAESTHESIA [None]
  - INCONTINENCE [None]
  - NEOPLASM MALIGNANT [None]
  - PARAESTHESIA [None]
